FAERS Safety Report 20870545 (Version 1)
Quarter: 2022Q2

REPORT INFORMATION
  Report Type: Report from Study
  Country: US (occurrence: US)
  Receive Date: 20220525
  Receipt Date: 20220525
  Transmission Date: 20220721
  Serious: Yes (Other)
  Sender: FDA-Public Use
  Company Number: US-BRISTOL-MYERS SQUIBB COMPANY-2022-042606

PATIENT
  Age: 77 Year
  Sex: Female
  Weight: 66.22 kg

DRUGS (5)
  1. REVLIMID [Suspect]
     Active Substance: LENALIDOMIDE
     Indication: Plasma cell myeloma
     Dosage: DOSE: TAKE ONE CAPSULE OF 5 MG WIT ONE CAPSULE OF 2.5 MG.?FREQUENCY: ON DAY 1 THROUGH OF (TOTAL DAIL
     Route: 048
     Dates: start: 20200824
  2. DEXAMETHASONE [Concomitant]
     Active Substance: DEXAMETHASONE
     Indication: Product used for unknown indication
  3. MULTIVITAMIN GUMMIES [Concomitant]
     Indication: Product used for unknown indication
  4. VITAMIN B12 [Concomitant]
     Active Substance: CYANOCOBALAMIN
     Indication: Product used for unknown indication
  5. VITAMIN D3 [Concomitant]
     Active Substance: CHOLECALCIFEROL

REACTIONS (3)
  - Eye irritation [Unknown]
  - Thrombosis [Unknown]
  - Loss of consciousness [Unknown]
